FAERS Safety Report 4817851-1 (Version None)
Quarter: 2005Q3

REPORT INFORMATION
  Report Type: 
  Country: None (occurrence: None)
  Receive Date: 20050929
  Receipt Date: 20050627
  Transmission Date: 20060218
  Serious: No
  Sender: FDA-Public Use
  Company Number: 05P-163-0304605-00

PATIENT
  Age: 52 Year
  Sex: Male
  Weight: 90.7194 kg

DRUGS (13)
  1. HUMIRA [Suspect]
     Indication: RHEUMATOID ARTHRITIS
     Dosage: 40 MG, 1 IN 2 WK, SUBCUTANEOUS
     Route: 058
     Dates: start: 20050101
  2. LANSOPRAZOLE [Concomitant]
  3. METHADONE [Concomitant]
  4. GABAPENTIN [Concomitant]
  5. SERTRALINE HYDROCHLORIDE [Concomitant]
  6. ASPIRIN [Concomitant]
  7. FUROSEMIDE [Concomitant]
  8. IMDUR [Concomitant]
  9. GLYCERYL TRINITRATE [Concomitant]
  10. PREDNISONE [Concomitant]
  11. ATORVASTATIN CALCIUM [Concomitant]
  12. DIGOXIN [Concomitant]
  13. METHOTREXATE [Concomitant]

REACTIONS (1)
  - ARTHRITIS [None]
